FAERS Safety Report 5527845-9 (Version None)
Quarter: 2007Q4

REPORT INFORMATION
  Report Type: 
  Country: None (occurrence: None)
  Receive Date: 20071126
  Receipt Date: 20071126
  Transmission Date: 20080405
  Serious: Yes (Life-Threatening, Hospitalization, Other)
  Sender: FDA-Public Use
  Company Number: None

PATIENT
  Sex: Female
  Weight: 47.6 kg

DRUGS (1)
  1. PROVIGIL [Suspect]
     Dosage: 200 MG QDAY PO
     Route: 048
     Dates: start: 20071116, end: 20071120

REACTIONS (3)
  - DRUG RASH WITH EOSINOPHILIA AND SYSTEMIC SYMPTOMS [None]
  - SKIN EXFOLIATION [None]
  - TRANSAMINASES INCREASED [None]
